FAERS Safety Report 24167718 (Version 2)
Quarter: 2024Q3

REPORT INFORMATION
  Report Type: Spontaneous
  Country: US (occurrence: US)
  Receive Date: 20240802
  Receipt Date: 20240809
  Transmission Date: 20241017
  Serious: Yes (Hospitalization, Other)
  Sender: PFIZER
  Company Number: US-MLMSERVICE-20240722-PI139705-00232-1

PATIENT
  Age: 44 Year
  Sex: Male

DRUGS (5)
  1. THYMOCYTE IMMUNE GLOBULIN NOS [Suspect]
     Active Substance: THYMOCYTE IMMUNE GLOBULIN NOS
     Indication: Immunosuppression
     Dosage: UNK
     Dates: start: 202008
  2. PREDNISONE [Suspect]
     Active Substance: PREDNISONE
     Indication: Immunosuppression
     Dosage: 5 MG, 1X/DAY
     Dates: start: 202008
  3. PREDNISONE [Suspect]
     Active Substance: PREDNISONE
     Dosage: 10 MG, 1X/DAY
     Dates: start: 202008
  4. TACROLIMUS [Suspect]
     Active Substance: TACROLIMUS
     Indication: Immunosuppression
     Dosage: 9 MG, 2X/DAY (TARGET TROUGH LEVEL 6-8 NG/ML)
     Route: 048
     Dates: start: 202008
  5. MYCOPHENOLIC ACID [Suspect]
     Active Substance: MYCOPHENOLIC ACID
     Indication: Immunosuppression
     Dosage: 1000 MG, 2X/DAY
     Dates: start: 202008

REACTIONS (5)
  - Monkeypox [Recovering/Resolving]
  - Diarrhoea [Recovering/Resolving]
  - White blood cell count increased [Unknown]
  - Platelet count increased [Unknown]
  - Proctitis [Recovering/Resolving]
